FAERS Safety Report 8382308-0 (Version None)
Quarter: 2012Q2

REPORT INFORMATION
  Report Type: 
  Country: None (occurrence: None)
  Receive Date: 20120524
  Receipt Date: 20120518
  Transmission Date: 20120825
  Serious: Yes (Death)
  Sender: FDA-Public Use
  Company Number: KR-MILLENNIUM PHARMACEUTICALS, INC.-2012-02560

PATIENT

DRUGS (8)
  1. PREDNISOLONE [Suspect]
     Indication: MULTIPLE MYELOMA
     Dosage: 60 MG/M2, UNK
     Dates: start: 20120312, end: 20120315
  2. DURAGESIC-100 [Concomitant]
     Indication: PAIN
     Dosage: 50 UG, UNK
     Dates: start: 20120402, end: 20120408
  3. VELCADE [Suspect]
     Indication: MULTIPLE MYELOMA
     Dosage: 1.3 MG/M2, UNK
     Route: 042
     Dates: start: 20120312, end: 20120405
  4. MELPHALAN HYDROCHLORIDE [Suspect]
     Indication: MULTIPLE MYELOMA
     Dosage: 4.5 MG/M2, UNK
     Dates: start: 20120312, end: 20120315
  5. ARESTAL                            /00384303/ [Concomitant]
     Indication: DIARRHOEA
     Dosage: 1 MG, UNK
     Route: 048
     Dates: start: 20120402, end: 20120408
  6. ALDACTONE [Concomitant]
     Indication: HYPERTENSION
     Dosage: 25 MG, UNK
     Route: 048
     Dates: start: 20120313, end: 20120408
  7. MEGESTROL ACETATE [Concomitant]
     Indication: DECREASED APPETITE
     Dosage: 20 ML, UNK
     Route: 048
     Dates: start: 20120402, end: 20120408
  8. LASIX [Concomitant]
     Indication: OEDEMA
     Dosage: 20 MG, UNK
     Route: 048
     Dates: start: 20120323, end: 20120408

REACTIONS (1)
  - DEATH [None]
